FAERS Safety Report 6646737-5 (Version None)
Quarter: 2010Q1

REPORT INFORMATION
  Report Type: 
  Country: None (occurrence: None)
  Receive Date: 20100317
  Receipt Date: 20100303
  Transmission Date: 20100710
  Serious: No
  Sender: FDA-Public Use
  Company Number: TPA2010A01004

PATIENT
  Sex: Female

DRUGS (5)
  1. PREVACID [Suspect]
     Indication: HIATUS HERNIA
     Dosage: 15 MG, 1 IN 1 D, PER ORAL
     Route: 048
     Dates: start: 20000101
  2. TRAVATAN [Suspect]
     Indication: GLAUCOMA
     Dosage: OPHTHALMIC
     Route: 047
  3. SYNTHROID [Concomitant]
  4. ZOCOR (ALL OTHER THERAPEUTIC PRODUCTS) [Concomitant]
  5. UNKNOWN ANTI-ANXIETY MEDICATION (ANXIOLYTICS) [Concomitant]

REACTIONS (4)
  - GLAUCOMA [None]
  - NERVOUSNESS [None]
  - OSTEOPOROSIS [None]
  - WEIGHT DECREASED [None]
